FAERS Safety Report 8054583-3 (Version None)
Quarter: 2012Q1

REPORT INFORMATION
  Report Type: 
  Country: None (occurrence: None)
  Receive Date: 20120119
  Receipt Date: 20120111
  Transmission Date: 20120608
  Serious: Yes (Hospitalization)
  Sender: FDA-Public Use
  Company Number: US-BIOGENIDEC-2011BI047938

PATIENT
  Age: 66 Year
  Sex: Female

DRUGS (1)
  1. AVONEX [Suspect]
     Indication: MULTIPLE SCLEROSIS
     Route: 030
     Dates: start: 19991001

REACTIONS (7)
  - NAUSEA [None]
  - LOSS OF CONSCIOUSNESS [None]
  - CONVULSION [None]
  - DIZZINESS [None]
  - SYNCOPE [None]
  - CONSCIOUSNESS FLUCTUATING [None]
  - VOMITING [None]
